FAERS Safety Report 18425207 (Version 3)
Quarter: 2020Q4

REPORT INFORMATION
  Report Type: Report from Study
  Country: JP (occurrence: JP)
  Receive Date: 20201026
  Receipt Date: 20201201
  Transmission Date: 20210114
  Serious: Yes (Death, Life-Threatening, Hospitalization, Disabling, Other)
  Sender: FDA-Public Use
  Company Number: NVSJ2020JP010526

PATIENT
  Age: 84 Year
  Sex: Female

DRUGS (19)
  1. REVOLADE TAB [Suspect]
     Active Substance: ELTROMBOPAG
     Dosage: 50 MG
     Route: 048
     Dates: start: 20190821, end: 20190919
  2. BLOOD PLATELETS [Concomitant]
     Dosage: 1500 ML
     Route: 065
     Dates: start: 20190726, end: 20190822
  3. REVOLADE TAB [Suspect]
     Active Substance: ELTROMBOPAG
     Indication: APLASTIC ANAEMIA
     Dosage: 25 MG
     Route: 048
     Dates: start: 20190628, end: 20190820
  4. BLOOD PLATELETS [Concomitant]
     Indication: PRODUCT USED FOR UNKNOWN INDICATION
     Dosage: 1000 ML
     Route: 065
     Dates: start: 20190628, end: 20190725
  5. BLOOD PLATELETS [Concomitant]
     Dosage: 800 ML
     Route: 065
     Dates: start: 20190920, end: 20191017
  6. REVOLADE TAB [Suspect]
     Active Substance: ELTROMBOPAG
     Dosage: 75 MG
     Route: 048
     Dates: start: 20190920, end: 20191217
  7. RED BLOOD CELLS, CONCENTRATED [Concomitant]
     Active Substance: HUMAN RED BLOOD CELL
     Dosage: 1600 ML, FOUR TIMES PER MONTH
     Route: 065
     Dates: start: 20191018, end: 20191114
  8. RED BLOOD CELLS, CONCENTRATED [Concomitant]
     Active Substance: HUMAN RED BLOOD CELL
     Dosage: 1600 ML
     Route: 065
     Dates: start: 20190920, end: 20191017
  9. BLOOD PLATELETS [Concomitant]
     Dosage: 1000 ML
     Route: 065
     Dates: start: 20191018, end: 20191114
  10. BLOOD PLATELETS [Concomitant]
     Dosage: 800 ML
     Route: 065
     Dates: start: 20191115, end: 20191212
  11. RED BLOOD CELLS, CONCENTRATED [Concomitant]
     Active Substance: HUMAN RED BLOOD CELL
     Dosage: 2000ML, FIVE TIMES PER MONTH
     Route: 065
     Dates: start: 20190726, end: 20190822
  12. RED BLOOD CELLS, CONCENTRATED [Concomitant]
     Active Substance: HUMAN RED BLOOD CELL
     Dosage: 1600 ML
     Route: 065
     Dates: start: 20191213, end: 20200111
  13. BLOOD PLATELETS [Concomitant]
     Dosage: 800 ML
     Route: 065
     Dates: start: 20190823, end: 20190919
  14. CYCLOSPORINE. [Suspect]
     Active Substance: CYCLOSPORINE
     Indication: APLASTIC ANAEMIA
     Dosage: 150 MG
     Route: 065
     Dates: start: 20190614, end: 20200107
  15. RED BLOOD CELLS, CONCENTRATED [Concomitant]
     Active Substance: HUMAN RED BLOOD CELL
     Dosage: 1200ML, THREE TIMES PER MONTH
     Route: 065
     Dates: start: 20190823, end: 20190919
  16. BLOOD PLATELETS [Concomitant]
     Dosage: 1000 ML, FIVE TIMES PER MONTH
     Route: 065
     Dates: start: 20191213, end: 20200111
  17. REVOLADE TAB [Suspect]
     Active Substance: ELTROMBOPAG
     Dosage: 100 MG
     Route: 048
     Dates: start: 20191218, end: 20200107
  18. RED BLOOD CELLS, CONCENTRATED [Concomitant]
     Active Substance: HUMAN RED BLOOD CELL
     Indication: PRODUCT USED FOR UNKNOWN INDICATION
     Dosage: 2000 ML
     Route: 065
     Dates: start: 20190628, end: 20190725
  19. RED BLOOD CELLS, CONCENTRATED [Concomitant]
     Active Substance: HUMAN RED BLOOD CELL
     Dosage: 1200 ML
     Route: 065
     Dates: start: 20191115, end: 20191212

REACTIONS (4)
  - White blood cell count decreased [Unknown]
  - Therapeutic product ineffective [Unknown]
  - Febrile neutropenia [Fatal]
  - Platelet count decreased [Unknown]

NARRATIVE: CASE EVENT DATE: 20190729
